FAERS Safety Report 15830715 (Version 1)
Quarter: 2019Q1

REPORT INFORMATION
  Report Type: Spontaneous
  Country: GB (occurrence: GB)
  Receive Date: 20190116
  Receipt Date: 20190116
  Transmission Date: 20190417
  Serious: Yes (Disabling)
  Sender: FDA-Public Use
  Company Number: GB-009507513-1901GBR002333

PATIENT
  Age: 63 Year
  Weight: 69.39 kg

DRUGS (2)
  1. LISINOPRIL. [Suspect]
     Active Substance: LISINOPRIL
     Dosage: 5 MILLIGRAM
     Route: 048
     Dates: start: 20181105
  2. AMITRIPTYLINE PAMOATE [Concomitant]
     Active Substance: AMITRIPTYLINE PAMOATE

REACTIONS (7)
  - Irritable bowel syndrome [Unknown]
  - Lethargy [Unknown]
  - Malaise [Unknown]
  - Swollen tongue [Recovering/Resolving]
  - Abdominal pain [Unknown]
  - Eye swelling [Recovering/Resolving]
  - Flatulence [Unknown]

NARRATIVE: CASE EVENT DATE: 20181203
